FAERS Safety Report 8530269-3 (Version None)
Quarter: 2012Q3

REPORT INFORMATION
  Report Type: 
  Country: None (occurrence: None)
  Receive Date: 20120723
  Receipt Date: 20120705
  Transmission Date: 20120928
  Serious: Yes (Other)
  Sender: FDA-Public Use
  Company Number: JP-009507513-1207JPN001307

PATIENT

DRUGS (7)
  1. TELAPREVIR [Concomitant]
     Indication: HEPATITIS C
     Dosage: 2250 MG, QD
     Route: 048
     Dates: start: 20120420, end: 20120423
  2. REBETOL [Suspect]
     Indication: HEPATITIS C
     Dosage: 800 MG, QD
     Route: 048
     Dates: start: 20120420
  3. TALION (BEPOTASTINE BESYLATE) [Concomitant]
     Indication: PROPHYLAXIS
     Dosage: 10 MG, QD
     Route: 048
     Dates: start: 20120420, end: 20120423
  4. TALION (BEPOTASTINE BESYLATE) [Concomitant]
     Dosage: 20 MICROGRAM, QD
     Dates: start: 20120423
  5. LOXONIN [Concomitant]
     Indication: PRODUCT USED FOR UNKNOWN INDICATION
     Dosage: 60 MG, PRN
     Route: 048
     Dates: start: 20120421
  6. PEG-INTRON [Suspect]
     Indication: HEPATITIS C
     Dosage: 100 MICROGRAM, QW
     Route: 058
     Dates: start: 20120420
  7. TELAPREVIR [Concomitant]
     Dosage: 1500 MG, QD
     Route: 048
     Dates: start: 20120424

REACTIONS (1)
  - RASH [None]
